FAERS Safety Report 4337271-6 (Version None)
Quarter: 2004Q2

REPORT INFORMATION
  Report Type: 
  Country: None (occurrence: None)
  Receive Date: 20040407
  Receipt Date: 20040322
  Transmission Date: 20050107
  Serious: Yes (Hospitalization)
  Sender: FDA-Public Use
  Company Number: WAES 0403CAN00156

PATIENT
  Sex: Male

DRUGS (3)
  1. DECADRON [Suspect]
     Indication: CHEMOTHERAPY
     Dosage: PO
     Route: 048
  2. GEMCITABINE [Suspect]
     Indication: CHEMOTHERAPY
     Dosage: 1000 MG/M[S] IV
     Route: 042
  3. CISPLATIN [Suspect]
     Indication: CHEMOTHERAPY
     Dosage: 75 MG/M[2] IV
     Route: 042

REACTIONS (2)
  - ILIAC ARTERY EMBOLISM [None]
  - MYOCARDIAL INFARCTION [None]
